FAERS Safety Report 7862590 (Version 4)
Quarter: 2015Q1

REPORT INFORMATION
  Report Type: Spontaneous
  Country: JP (occurrence: JP)
  Receive Date: 20110318
  Receipt Date: 20150327
  Transmission Date: 20150721
  Serious: Yes (Other)
  Sender: FDA-Public Use
  Company Number: JP-PFIZER INC-2011058316

PATIENT
  Age: 77 Year
  Sex: Male

DRUGS (2)
  1. SUTENT [Suspect]
     Active Substance: SUNITINIB MALATE
     Dosage: 37.5 MG, DAILY, FOR 28 DAYS
     Route: 048
     Dates: start: 20110215, end: 20110314
  2. SUTENT [Suspect]
     Active Substance: SUNITINIB MALATE
     Indication: RENAL CELL CARCINOMA
     Dosage: 37.5 MG, DAILY, FOR 28 DAYS
     Route: 048
     Dates: start: 20110105, end: 20110201

REACTIONS (3)
  - Disease progression [Unknown]
  - Interstitial lung disease [Recovering/Resolving]
  - Renal cell carcinoma [Unknown]

NARRATIVE: CASE EVENT DATE: 20110314
